FAERS Safety Report 9159239 (Version 2)
Quarter: 2013Q2

REPORT INFORMATION
  Report Type: Report from Study
  Country: CA (occurrence: CA)
  Receive Date: 20130313
  Receipt Date: 20130513
  Transmission Date: 20140414
  Serious: Yes (Hospitalization, Other)
  Sender: FDA-Public Use
  Company Number: CA-JNJFOC-20130300201

PATIENT
  Sex: Female
  Weight: 78.1 kg

DRUGS (11)
  1. REMICADE [Suspect]
     Indication: CROHN^S DISEASE
     Route: 042
     Dates: start: 20120110
  2. REMICADE [Suspect]
     Indication: CROHN^S DISEASE
     Dosage: APPROXIMATELY JAN-2011
     Route: 042
     Dates: start: 2011
  3. REMICADE [Suspect]
     Indication: CROHN^S DISEASE
     Route: 042
     Dates: start: 2008
  4. AZATHIOPRINE [Concomitant]
     Route: 065
  5. SERTRALINE [Concomitant]
     Route: 065
  6. OMEPRAZOLE [Concomitant]
     Route: 065
  7. CODEINE [Concomitant]
     Route: 065
  8. WARFARIN [Concomitant]
     Route: 065
  9. ZYLOPRIM [Concomitant]
     Route: 065
  10. LIPIDS NOS [Concomitant]
     Route: 065
  11. ZOPICLONE [Concomitant]
     Route: 065

REACTIONS (7)
  - Short-bowel syndrome [Recovering/Resolving]
  - Renal failure [Unknown]
  - Weight decreased [Unknown]
  - Gout [Unknown]
  - Crohn^s disease [Unknown]
  - Dehydration [Unknown]
  - Intestinal operation [Unknown]
